FAERS Safety Report 17300696 (Version 3)
Quarter: 2021Q3

REPORT INFORMATION
  Report Type: Spontaneous
  Country: JP (occurrence: JP)
  Receive Date: 20200122
  Receipt Date: 20210707
  Transmission Date: 20211014
  Serious: Yes (Hospitalization, Other)
  Sender: FDA-Public Use
  Company Number: JP-LUNDBECK-DKLU3010677

PATIENT
  Age: 2 Year
  Sex: Male
  Weight: 9.36 kg

DRUGS (13)
  1. LAMOTRIGINE. [Concomitant]
     Active Substance: LAMOTRIGINE
     Indication: INFANTILE SPASMS
     Dosage: 30 MG/DAY
     Route: 048
  2. VIGABATRIN (FOR ORAL SOLUTION) [Suspect]
     Active Substance: VIGABATRIN
     Dosage: 450 MG, BID
     Route: 048
     Dates: start: 20190924, end: 20191014
  3. ROZEREM [Concomitant]
     Active Substance: RAMELTEON
     Indication: PRODUCT USED FOR UNKNOWN INDICATION
     Dosage: 2 MG/DAY
     Route: 048
  4. VITAMIN B6 [Concomitant]
     Active Substance: PYRIDOXINE HYDROCHLORIDE
     Indication: PROPHYLAXIS
     Dosage: 180 MG/DAY
     Route: 048
     Dates: start: 20191216
  5. VIGABATRIN (FOR ORAL SOLUTION) [Suspect]
     Active Substance: VIGABATRIN
     Dosage: 225 MG, BID
     Route: 048
     Dates: start: 20190910, end: 20190923
  6. NITRAZEPAM [Concomitant]
     Active Substance: NITRAZEPAM
     Indication: INFANTILE SPASMS
     Dosage: 0.5?1.0 MG/DAY
     Route: 048
     Dates: start: 20191015
  7. VITAMIN B6 [Concomitant]
     Active Substance: PYRIDOXINE HYDROCHLORIDE
     Indication: ENCEPHALOPATHY
     Dosage: 160 MG/DAY
     Route: 048
     Dates: end: 20191114
  8. VIGABATRIN (FOR ORAL SOLUTION) [Suspect]
     Active Substance: VIGABATRIN
     Indication: INFANTILE SPASMS
     Dosage: 550 MG, BID
     Route: 048
     Dates: start: 20191015, end: 20191216
  9. TIZANIDINE [TIZANIDINE HYDROCHLORIDE] [Concomitant]
     Active Substance: TIZANIDINE HYDROCHLORIDE
     Indication: PRODUCT USED FOR UNKNOWN INDICATION
     Dosage: 1.5 MG/DAY
     Route: 048
  10. DOPASTON [Concomitant]
     Active Substance: LEVODOPA
     Indication: PRODUCT USED FOR UNKNOWN INDICATION
     Dosage: 0.15 G/DAY
     Route: 048
  11. VALPROATE SODIUM. [Concomitant]
     Active Substance: VALPROATE SODIUM
     Indication: INFANTILE SPASMS
     Dosage: 225 MG/DAY
     Route: 048
  12. VITAMIN B6 [Concomitant]
     Active Substance: PYRIDOXINE HYDROCHLORIDE
     Indication: INVESTIGATION
     Dosage: UNK
     Route: 065
  13. L CARTIN FF [Concomitant]
     Active Substance: LEVOCARNITINE
     Indication: PRODUCT USED FOR UNKNOWN INDICATION
     Dosage: 2 ML/DAY
     Route: 048

REACTIONS (5)
  - Encephalopathy [Recovered/Resolved]
  - Diffusion-weighted brain MRI abnormal [Recovered/Resolved]
  - Acute respiratory failure [Recovered/Resolved]
  - Muscle tightness [Recovered/Resolved]
  - Clonic convulsion [Recovered/Resolved]

NARRATIVE: CASE EVENT DATE: 201912
